FAERS Safety Report 8247354-6 (Version None)
Quarter: 2012Q1

REPORT INFORMATION
  Report Type: 
  Country: None (occurrence: None)
  Receive Date: 20120328
  Receipt Date: 20120328
  Transmission Date: 20120608
  Serious: No
  Sender: FDA-Public Use
  Company Number: None

PATIENT
  Age: 61 Year
  Sex: Female

DRUGS (1)
  1. CEFOTAXIME [Suspect]
     Dosage: 1 G IV Q 12 H
     Route: 042
     Dates: start: 20100521, end: 20100525

REACTIONS (4)
  - RENAL FAILURE [None]
  - RASH MORBILLIFORM [None]
  - DRUG HYPERSENSITIVITY [None]
  - RASH MACULAR [None]
